FAERS Safety Report 8856156 (Version 1)
Quarter: 2012Q4

REPORT INFORMATION
  Report Type: Spontaneous
  Country: US (occurrence: None)
  Receive Date: 20121023
  Receipt Date: 20121023
  Transmission Date: 20130627
  Serious: Yes (Other)
  Sender: FDA-Public Use
  Company Number: None

PATIENT
  Age: 14 Year
  Sex: Female
  Weight: 41.73 kg

DRUGS (2)
  1. TOPIRAMATE [Suspect]
     Indication: PSYCHOTIC DISORDER
     Dosage: 1 tab
     Route: 048
     Dates: start: 200803
  2. TOPIRAMATE [Suspect]
     Dosage: 1 tab
     Route: 048

REACTIONS (2)
  - Convulsion [None]
  - Product substitution issue [None]
